FAERS Safety Report 20770786 (Version 3)
Quarter: 2022Q2

REPORT INFORMATION
  Report Type: Spontaneous
  Country: US (occurrence: US)
  Receive Date: 20220429
  Receipt Date: 20220524
  Transmission Date: 20220720
  Serious: Yes (Hospitalization, Other)
  Sender: FDA-Public Use
  Company Number: US-PFIZER INC-202200631983

PATIENT
  Age: 52 Year
  Sex: Female
  Weight: 75.75 kg

DRUGS (2)
  1. BENZONATATE [Suspect]
     Active Substance: BENZONATATE
     Indication: Hypersensitivity
     Dosage: 200 MG
     Route: 048
  2. BENZONATATE [Suspect]
     Active Substance: BENZONATATE
     Indication: Cough
     Dosage: 100 SO AS NEEDED
     Dates: start: 20220501

REACTIONS (8)
  - Cerebrovascular accident [Unknown]
  - Glaucoma [Unknown]
  - Cognitive disorder [Unknown]
  - Off label use [Unknown]
  - Drug effective for unapproved indication [Unknown]
  - Hypoacusis [Unknown]
  - Hypersensitivity [Unknown]
  - Speech disorder [Recovered/Resolved]

NARRATIVE: CASE EVENT DATE: 20070501
